FAERS Safety Report 7167992-1 (Version None)
Quarter: 2010Q4

REPORT INFORMATION
  Report Type: 
  Country: None (occurrence: None)
  Receive Date: 20101216
  Receipt Date: 20101206
  Transmission Date: 20110411
  Serious: Yes (Other)
  Sender: FDA-Public Use
  Company Number: US-PFIZER INC-2010165490

PATIENT
  Sex: Female
  Weight: 63.492 kg

DRUGS (4)
  1. SERTRALINE HYDROCHLORIDE [Suspect]
     Indication: DEPRESSION
     Dosage: 50 MG DAILY
     Route: 048
     Dates: start: 20090101
  2. SERTRALINE HYDROCHLORIDE [Suspect]
     Dosage: 100 MG, UNK
  3. TRAZODONE [Concomitant]
     Indication: INSOMNIA
     Dosage: UNK
  4. TRAMADOL [Concomitant]
     Indication: BACK PAIN
     Dosage: 50 MG, AS NEEDED

REACTIONS (5)
  - DEPRESSION [None]
  - DRUG INEFFECTIVE [None]
  - DYSPHAGIA [None]
  - PRODUCT SOLUBILITY ABNORMAL [None]
  - SUICIDAL IDEATION [None]
